FAERS Safety Report 5478275-X (Version None)
Quarter: 2007Q4

REPORT INFORMATION
  Report Type: 
  Country: None (occurrence: None)
  Receive Date: 20071005
  Receipt Date: 20070730
  Transmission Date: 20080405
  Serious: No
  Sender: FDA-Public Use
  Company Number: US-BRISTOL-MYERS SQUIBB COMPANY-13861414

PATIENT
  Age: 63 Year
  Sex: Female
  Weight: 91 kg

DRUGS (11)
  1. AVAPRO [Suspect]
     Indication: HYPERTENSION
     Dates: start: 20070701
  2. PLAVIX [Concomitant]
  3. COREG [Concomitant]
  4. FOLTX [Concomitant]
  5. ASPIRIN [Concomitant]
  6. CRESTOR [Concomitant]
  7. GLUCOPHAGE [Concomitant]
  8. ACIPHEX [Concomitant]
  9. LASIX [Concomitant]
  10. COENZYME Q10 [Concomitant]
  11. OMEGA 3 FISH OIL [Concomitant]

REACTIONS (1)
  - DYSGEUSIA [None]
